FAERS Safety Report 8806210 (Version 2)
Quarter: 2012Q4

REPORT INFORMATION
  Report Type: Spontaneous
  Country: US (occurrence: None)
  Receive Date: 20120917
  Receipt Date: 20121002
  Transmission Date: 20130627
  Serious: Yes (Other)
  Sender: FDA-Public Use
  Company Number: AUR-APL-2012-03954

PATIENT
  Age: 55 Year
  Sex: Female
  Weight: 68.3 kg

DRUGS (2)
  1. VENLAFAXINE [Suspect]
     Indication: DEPRESSION
  2. EFFEXOR XR [Suspect]
     Dosage: (75 mg, 1 D), Unknown
     Dates: start: 201208, end: 201208

REACTIONS (6)
  - Product container issue [None]
  - Drug dispensing error [None]
  - Product commingling [None]
  - Product quality issue [None]
  - Vision blurred [None]
  - Transient ischaemic attack [None]
